FAERS Safety Report 8201337-0 (Version None)
Quarter: 2012Q1

REPORT INFORMATION
  Report Type: 
  Country: None (occurrence: None)
  Receive Date: 20120312
  Receipt Date: 20120301
  Transmission Date: 20120608
  Serious: Yes (Hospitalization)
  Sender: FDA-Public Use
  Company Number: BG-AMGEN-BGRSP2012014175

PATIENT
  Age: 36 Year
  Sex: Female

DRUGS (4)
  1. AZOPT [Concomitant]
     Dosage: UNK
     Dates: start: 20080101
  2. CUSIMOLOL [Concomitant]
     Dosage: UNK
     Dates: start: 20080101
  3. NACLOF [Concomitant]
     Dosage: UNK
     Dates: start: 20080101
  4. ENBREL [Suspect]
     Indication: RHEUMATOID ARTHRITIS
     Dosage: 50 MG, WEEKLY
     Route: 058
     Dates: start: 20110901, end: 20120201

REACTIONS (1)
  - NEURITIS [None]
